FAERS Safety Report 6121176-4 (Version None)
Quarter: 2009Q1

REPORT INFORMATION
  Report Type: 
  Country: None (occurrence: None)
  Receive Date: 20090312
  Receipt Date: 20090312
  Transmission Date: 20090719
  Serious: Yes (Hospitalization, Other)
  Sender: FDA-Public Use
  Company Number: None

PATIENT
  Sex: Female
  Weight: 27.7 kg

DRUGS (2)
  1. ENOXAPARIN SODIUM [Suspect]
     Indication: THROMBOSIS IN DEVICE
     Dosage: 28 MG BID SQ
     Route: 058
  2. ASPIRIN [Suspect]
     Dosage: 81 MG DAILY PO
     Route: 048

REACTIONS (9)
  - ANAEMIA [None]
  - GASTRIC DISORDER [None]
  - HAEMATOCHEZIA [None]
  - HAEMATURIA [None]
  - HAEMOPTYSIS [None]
  - HAEMORRHAGE [None]
  - INTERNATIONAL NORMALISED RATIO INCREASED [None]
  - RECTAL HAEMORRHAGE [None]
  - VARICOSE VEIN [None]
